FAERS Safety Report 5215700-3 (Version None)
Quarter: 2007Q1

REPORT INFORMATION
  Report Type: 
  Country: None (occurrence: None)
  Receive Date: 20070123
  Receipt Date: 20070112
  Transmission Date: 20070707
  Serious: Yes (Hospitalization)
  Sender: FDA-Public Use
  Company Number: FR-ROCHE-478699

PATIENT
  Age: 41 Year
  Sex: Female
  Weight: 56 kg

DRUGS (4)
  1. PEGASYS [Suspect]
     Indication: HEPATITIS C VIRUS
     Route: 058
     Dates: start: 20060220, end: 20061205
  2. COPEGUS [Suspect]
     Indication: HEPATITIS C VIRUS
     Route: 065
     Dates: start: 20060220, end: 20061205
  3. PAROXETINE HCL [Concomitant]
     Dates: start: 20060220
  4. ARANESP [Concomitant]
     Indication: ANAEMIA
     Dosage: DOSE WAS INCREASED FROM 150 MCG/WEEKLY TO 500 MCG/WEEKLY ON 23 MAY 2006.
     Dates: start: 20060424

REACTIONS (5)
  - CARDIAC FAILURE [None]
  - GAMMA-GLUTAMYLTRANSFERASE INCREASED [None]
  - HYPOCALCAEMIA [None]
  - MYELOFIBROSIS [None]
  - PANCYTOPENIA [None]
